FAERS Safety Report 18084093 (Version 1)
Quarter: 2020Q3

REPORT INFORMATION
  Report Type: Spontaneous
  Country: PL (occurrence: PL)
  Receive Date: 20200729
  Receipt Date: 20200729
  Transmission Date: 20201103
  Serious: Yes (Death, Life-Threatening, Other)
  Sender: FDA-Public Use
  Company Number: PL-SUN PHARMACEUTICAL INDUSTRIES LTD-2020R1-254961

PATIENT
  Age: 64 Year
  Sex: Male

DRUGS (3)
  1. ATEZOLIZUMAB. [Suspect]
     Active Substance: ATEZOLIZUMAB
     Indication: SMALL CELL LUNG CANCER
     Dosage: 120 MILLIGRAM, ONCE IN 3 WEEKS
     Route: 042
  2. CARBOPLATIN. [Suspect]
     Active Substance: CARBOPLATIN
     Indication: SMALL CELL LUNG CANCER
     Dosage: ON DAY 1, AUC 5 AND ETOPOSIDE FOR 3 CONSECUTIVE DAYS AT A DOSE OF 120 MG / M2
     Route: 065
  3. ETOPOSIDE. [Suspect]
     Active Substance: ETOPOSIDE
     Indication: SMALL CELL LUNG CANCER
     Dosage: 120 MG / M2
     Route: 065

REACTIONS (10)
  - Asthenia [Unknown]
  - Fatigue [Unknown]
  - Neutropenia [Unknown]
  - Death [Fatal]
  - Vomiting [Unknown]
  - Anaemia [Unknown]
  - Decreased appetite [Unknown]
  - Hyperthyroidism [Unknown]
  - Therapy partial responder [Unknown]
  - Arthralgia [Unknown]

NARRATIVE: CASE EVENT DATE: 201803
